FAERS Safety Report 24902811 (Version 1)
Quarter: 2025Q1

REPORT INFORMATION
  Report Type: Spontaneous
  Country: US (occurrence: US)
  Receive Date: 20250130
  Receipt Date: 20250130
  Transmission Date: 20250409
  Serious: Yes (Death, Hospitalization, Other)
  Sender: NOVITIUM PHARMA
  Company Number: US-NOVITIUMPHARMA-2025USNVP00246

PATIENT
  Sex: Male

DRUGS (8)
  1. PREDNISONE [Suspect]
     Active Substance: PREDNISONE
     Indication: Pulmonary sarcoidosis
  2. PREDNISONE [Suspect]
     Active Substance: PREDNISONE
  3. SULFAMETHOXAZOLE\TRIMETHOPRIM [Suspect]
     Active Substance: SULFAMETHOXAZOLE\TRIMETHOPRIM
     Indication: Nocardiosis
  4. IMIPENEM [Concomitant]
     Active Substance: IMIPENEM
     Indication: Nocardiosis
  5. LINEZOLID [Concomitant]
     Active Substance: LINEZOLID
     Indication: Nocardiosis
  6. CEFTRIAXONE [Concomitant]
     Active Substance: CEFTRIAXONE
     Indication: Nocardiosis
  7. MEROPENEM [Concomitant]
     Active Substance: MEROPENEM
     Indication: Nocardiosis
  8. TEDIZOLID [Concomitant]
     Active Substance: TEDIZOLID
     Indication: Nocardiosis

REACTIONS (5)
  - Nocardiosis [Fatal]
  - Pneumonia [Unknown]
  - Acute kidney injury [Unknown]
  - Cellulitis [Unknown]
  - Pleural effusion [Unknown]
